FAERS Safety Report 18564541 (Version 1)
Quarter: 2020Q4

REPORT INFORMATION
  Report Type: Spontaneous
  Country: US (occurrence: US)
  Receive Date: 20201130
  Receipt Date: 20201130
  Transmission Date: 20210114
  Serious: Yes (Death)
  Sender: FDA-Public Use
  Company Number: None

PATIENT
  Age: 70 Year
  Sex: Male

DRUGS (11)
  1. KLOR-CON M20 [Suspect]
     Active Substance: POTASSIUM CHLORIDE
  2. TAMSULOSIN HYDROCHLORIDE. [Suspect]
     Active Substance: TAMSULOSIN HYDROCHLORIDE
  3. ABIRATERONE. [Suspect]
     Active Substance: ABIRATERONE ACETATE
     Indication: PROSTATE CANCER
     Route: 048
     Dates: start: 20200110
  4. ASPIRIN. [Suspect]
     Active Substance: ASPIRIN
  5. CARVEDILIL [Concomitant]
  6. FUROSEMIDE. [Suspect]
     Active Substance: FUROSEMIDE
  7. NORCO [Suspect]
     Active Substance: ACETAMINOPHEN\HYDROCODONE BITARTRATE
  8. ZYRTEC [Suspect]
     Active Substance: CETIRIZINE HYDROCHLORIDE
  9. CASODEX [Suspect]
     Active Substance: BICALUTAMIDE
  10. PREDNISONE. [Suspect]
     Active Substance: PREDNISONE
     Indication: PROSTATE CANCER
     Route: 048
     Dates: start: 20200110
  11. ALEVE [Suspect]
     Active Substance: NAPROXEN SODIUM

REACTIONS (2)
  - Cardiac failure congestive [None]
  - Arterial rupture [None]

NARRATIVE: CASE EVENT DATE: 20201128
